FAERS Safety Report 16127447 (Version 2)
Quarter: 2019Q2

REPORT INFORMATION
  Report Type: Spontaneous
  Country: US (occurrence: US)
  Receive Date: 20190328
  Receipt Date: 20190603
  Transmission Date: 20190711
  Serious: No
  Sender: FDA-Public Use
  Company Number: US-GLENMARK PHARMACEUTICALS-2019GMK039817

PATIENT

DRUGS (1)
  1. CLOBETASOL PROPIONATE OINTMENT USP, 0.05% [Suspect]
     Active Substance: CLOBETASOL PROPIONATE
     Indication: PSORIASIS
     Dosage: ONCE A DAY OR EVERY TIME TOOK A SHOWER
     Route: 061
     Dates: start: 2018

REACTIONS (2)
  - Product container issue [Unknown]
  - Drug effective for unapproved indication [Unknown]
